FAERS Safety Report 6706236-9 (Version None)
Quarter: 2010Q2

REPORT INFORMATION
  Report Type: 
  Country: None (occurrence: None)
  Receive Date: 20100430
  Receipt Date: 20100430
  Transmission Date: 20101027
  Serious: Yes (Hospitalization)
  Sender: FDA-Public Use
  Company Number: None

PATIENT
  Sex: Male
  Weight: 92.8 kg

DRUGS (3)
  1. ISOTRETINOIN [Suspect]
     Dosage: 680 MG
  2. TEMOZOLOMIDE [Suspect]
     Dosage: 1280 MG
  3. THALIDOMIDE [Suspect]
     Dosage: 800 MG

REACTIONS (3)
  - HEADACHE [None]
  - LYMPHOPENIA [None]
  - PYREXIA [None]
